FAERS Safety Report 12338234 (Version 1)
Quarter: 2016Q2

REPORT INFORMATION
  Report Type: Spontaneous
  Country: US (occurrence: US)
  Receive Date: 20160505
  Receipt Date: 20160505
  Transmission Date: 20160815
  Serious: No
  Sender: FDA-Public Use
  Company Number: US-BEH-2015053140

PATIENT
  Sex: Male

DRUGS (1)
  1. STIMATE [Suspect]
     Active Substance: DESMOPRESSIN ACETATE
     Indication: FACTOR VIII DEFICIENCY
     Dosage: 1.5 MG/ML (1 SPRAY IN LEFT NOSTRIL PM MILD BLEEDS)
     Route: 045

REACTIONS (1)
  - Contusion [Unknown]
